FAERS Safety Report 9356573 (Version 2)
Quarter: 2015Q2

REPORT INFORMATION
  Report Type: Spontaneous
  Country: FR (occurrence: FR)
  Receive Date: 20130619
  Receipt Date: 20150428
  Transmission Date: 20150821
  Serious: Yes (Hospitalization)
  Sender: FDA-Public Use
  Company Number: PHHY2013FR060224

PATIENT
  Age: 45 Year
  Sex: Female

DRUGS (3)
  1. METHOTREXATE [Suspect]
     Active Substance: METHOTREXATE
     Indication: ANKYLOSING SPONDYLITIS
     Dates: start: 201203
  2. ETANERCEPT [Concomitant]
     Active Substance: ETANERCEPT
  3. SULFASALAZINE. [Concomitant]
     Active Substance: SULFASALAZINE

REACTIONS (10)
  - Energy increased [Recovering/Resolving]
  - Persecutory delusion [Recovering/Resolving]
  - Personality disorder [Recovering/Resolving]
  - Inflammation [Unknown]
  - Aggression [Recovering/Resolving]
  - Dysgraphia [Unknown]
  - Paranoia [Recovering/Resolving]
  - Mental disorder [Recovering/Resolving]
  - Delirium [Recovering/Resolving]
  - Depression [Recovering/Resolving]
